FAERS Safety Report 21357422 (Version 1)
Quarter: 2022Q3

REPORT INFORMATION
  Report Type: Spontaneous
  Country: US (occurrence: US)
  Receive Date: 20220921
  Receipt Date: 20220921
  Transmission Date: 20221026
  Serious: Yes (Other)
  Sender: FDA-Public Use
  Company Number: US-SA-SAC20220919000256

PATIENT

DRUGS (2)
  1. ZANTAC [Suspect]
     Active Substance: RANITIDINE HYDROCHLORIDE
     Dosage: UNK,PRESCRIPTION ZANTAC FROM APPROXIMATELY 1995 TO 2019
     Route: 048
     Dates: start: 1995, end: 2019
  2. RANITIDINE [Suspect]
     Active Substance: RANITIDINE
     Dosage: UNK,OVER THE COUNTER RANITIDINE FROM APPROXIMATELY 2000 TO 2019
     Route: 048
     Dates: start: 2000, end: 2019

REACTIONS (2)
  - Breast cancer [Unknown]
  - Metastases to bone [Unknown]
